FAERS Safety Report 22608202 (Version 3)
Quarter: 2024Q1

REPORT INFORMATION
  Report Type: Spontaneous
  Country: CA (occurrence: CA)
  Receive Date: 20230616
  Receipt Date: 20240118
  Transmission Date: 20240410
  Serious: Yes (Hospitalization, Other)
  Sender: FDA-Public Use
  Company Number: CA-CELLTRION INC.-2022CA022387

PATIENT

DRUGS (7)
  1. YUFLYMA [Suspect]
     Active Substance: ADALIMUMAB-AATY
     Indication: Crohn^s disease
     Dosage: 40 MG, WEEKS-WEEKLY
     Route: 058
     Dates: start: 20220629
  2. YUFLYMA [Suspect]
     Active Substance: ADALIMUMAB-AATY
     Dosage: EVERY 2WEEKS
     Route: 058
     Dates: start: 20220713
  3. YUFLYMA [Suspect]
     Active Substance: ADALIMUMAB-AATY
     Dosage: 40MG EVERY TWO WEEKS
     Route: 058
     Dates: start: 20230407
  4. YUFLYMA [Suspect]
     Active Substance: ADALIMUMAB-AATY
     Dosage: EVERY 2 WEEKS
     Route: 058
     Dates: start: 20230421
  5. YUFLYMA [Suspect]
     Active Substance: ADALIMUMAB-AATY
     Dosage: MAINTENANCE DOSING/FREQUENCY: WEEK 1: 80MG THEN 40MG/WEEKLY
  6. YUFLYMA [Suspect]
     Active Substance: ADALIMUMAB-AATY
     Dosage: 40 MILLIGRAM, 1/WEEK (MOST RECENT INJECTION DATE)
     Route: 058
     Dates: start: 20231229
  7. PREDNISONE [Concomitant]
     Active Substance: PREDNISONE

REACTIONS (9)
  - Crohn^s disease [Not Recovered/Not Resolved]
  - Pulmonary thrombosis [Unknown]
  - Diarrhoea [Unknown]
  - Pneumonia [Recovering/Resolving]
  - Malaise [Unknown]
  - Product distribution issue [Unknown]
  - Therapy interrupted [Unknown]
  - Feeling abnormal [Unknown]
  - Drug ineffective [Unknown]

NARRATIVE: CASE EVENT DATE: 20220702
